FAERS Safety Report 9866105 (Version 2)
Quarter: 2014Q1

REPORT INFORMATION
  Report Type: Spontaneous
  Country: US (occurrence: US)
  Receive Date: 20140203
  Receipt Date: 20140203
  Transmission Date: 20141002
  Serious: No
  Sender: FDA-Public Use
  Company Number: US-ALLERGAN-1315715US

PATIENT
  Age: 84 Year
  Sex: Female

DRUGS (3)
  1. RESTASIS [Suspect]
     Indication: DRY EYE
     Dosage: 4 GTT, BID
     Route: 047
  2. OTC EYE DROP [Concomitant]
     Indication: DRY EYE
  3. OTC EYE DROP [Concomitant]
     Indication: FOREIGN BODY SENSATION IN EYES

REACTIONS (2)
  - Incorrect dose administered [Unknown]
  - Eye pain [Recovered/Resolved]
